FAERS Safety Report 9339161 (Version 1)
Quarter: 2013Q2

REPORT INFORMATION
  Report Type: Spontaneous
  Country: US (occurrence: None)
  Receive Date: 20130604
  Receipt Date: 20130604
  Transmission Date: 20140414
  Serious: Yes (Other)
  Sender: FDA-Public Use
  Company Number: 2013036214

PATIENT
  Age: 13 Month
  Sex: Male

DRUGS (1)
  1. FVIII [Suspect]
     Indication: FACTOR VIII DEFICIENCY

REACTIONS (10)
  - Drug ineffective for unapproved indication [None]
  - Factor VIII inhibition [None]
  - Device related infection [None]
  - Endocarditis [None]
  - Pulmonary embolism [None]
  - Central nervous system haemorrhage [None]
  - Pharyngeal haemorrhage [None]
  - Haemarthrosis [None]
  - Haemothorax [None]
  - Depression [None]
